FAERS Safety Report 5166889-6 (Version None)
Quarter: 2006Q4

REPORT INFORMATION
  Report Type: 
  Country: None (occurrence: None)
  Receive Date: 20061207
  Receipt Date: 20061129
  Transmission Date: 20070319
  Serious: Yes (Other)
  Sender: FDA-Public Use
  Company Number: GB-ROCHE-473527

PATIENT
  Age: 72 Year
  Sex: Female

DRUGS (6)
  1. XENICAL [Suspect]
     Indication: DRUG USE FOR UNKNOWN INDICATION
     Route: 065
     Dates: start: 20061019
  2. VALPROATE SODIUM [Concomitant]
     Indication: EPILEPSY
  3. ASPIRIN [Concomitant]
  4. VERAPAMIL [Concomitant]
  5. PIOGLITAZONE HCL [Concomitant]
  6. PRAVASTATIN [Concomitant]
     Dosage: TAKEN NIGHTLY

REACTIONS (1)
  - CONVULSION [None]
